FAERS Safety Report 5340683-5 (Version None)
Quarter: 2007Q2

REPORT INFORMATION
  Report Type: 
  Country: None (occurrence: None)
  Receive Date: 20070405
  Receipt Date: 20061204
  Transmission Date: 20071010
  Serious: No
  Sender: FDA-Public Use
  Company Number: US200612000541

PATIENT
  Sex: Male

DRUGS (8)
  1. CYMBALTA [Suspect]
     Indication: ANXIETY
     Dosage: SEE IMAGE
     Dates: start: 20051001
  2. CYMBALTA [Suspect]
     Indication: ANXIETY
     Dosage: SEE IMAGE
     Dates: start: 20061101
  3. ZIAC [Concomitant]
  4. COUMADIN [Concomitant]
  5. KEPPRA /USA/ (LEVETIRACETAM) [Concomitant]
  6. LOMOTIL [Concomitant]
  7. TRAZODONE HCL [Concomitant]
  8. ESCZOPICLONE (ESZOPICLONE) [Concomitant]

REACTIONS (1)
  - BLOOD PRESSURE INCREASED [None]
